FAERS Safety Report 18528669 (Version 4)
Quarter: 2021Q3

REPORT INFORMATION
  Report Type: Spontaneous
  Country: US (occurrence: US)
  Receive Date: 20201120
  Receipt Date: 20210805
  Transmission Date: 20211014
  Serious: Yes (Hospitalization, Other)
  Sender: FDA-Public Use
  Company Number: US-PURDUE-USA-2020-0178181

PATIENT
  Age: 47 Year
  Sex: Male

DRUGS (3)
  1. OXYCONTIN [Suspect]
     Active Substance: OXYCODONE HYDROCHLORIDE
     Indication: PRODUCT USED FOR UNKNOWN INDICATION
     Dosage: UNKNOWN
     Route: 048
  2. OXYCODONE/ ACETAMINOPHEN TABLETS [Suspect]
     Active Substance: ACETAMINOPHEN\OXYCODONE HYDROCHLORIDE
     Indication: PRODUCT USED FOR UNKNOWN INDICATION
     Dosage: UNKNOWN
     Route: 048
  3. OXYCODONE HCL TABLETS (RHODES 91?490) [Suspect]
     Active Substance: OXYCODONE HYDROCHLORIDE
     Indication: PAIN
     Dosage: 10 MG, QID
     Route: 048

REACTIONS (12)
  - Drug withdrawal syndrome [Unknown]
  - Drug use disorder [Unknown]
  - Disturbance in attention [Unknown]
  - Impaired work ability [Recovered/Resolved]
  - Heart injury [Unknown]
  - Panic attack [Unknown]
  - Brain injury [Unknown]
  - Anxiety [Unknown]
  - Hospitalisation [Unknown]
  - Renal injury [Unknown]
  - Drug dependence [Unknown]
  - Developmental delay [Unknown]

NARRATIVE: CASE EVENT DATE: 20200708
